FAERS Safety Report 15481662 (Version 1)
Quarter: 2018Q4

REPORT INFORMATION
  Report Type: Report from Study
  Country: None (occurrence: RO)
  Receive Date: 20181010
  Receipt Date: 20181010
  Transmission Date: 20190205
  Serious: Yes (Hospitalization)
  Sender: FDA-Public Use
  Company Number: RO-ABBVIE-18K-135-2513971-00

PATIENT
  Sex: Male

DRUGS (6)
  1. NEOFLOXIN [Concomitant]
     Indication: ANKYLOSING SPONDYLITIS
     Route: 048
  2. IBUTIN [Concomitant]
     Indication: IRRITABLE BOWEL SYNDROME
     Route: 048
     Dates: start: 2007
  3. NORMIX [Concomitant]
     Active Substance: RIFAXIMIN
     Indication: IRRITABLE BOWEL SYNDROME
     Route: 048
     Dates: start: 2007
  4. HUMIRA [Suspect]
     Active Substance: ADALIMUMAB
     Indication: ANKYLOSING SPONDYLITIS
     Route: 058
     Dates: start: 20081015
  5. XEFO RAPID [Concomitant]
     Active Substance: LORNOXICAM
     Indication: ANKYLOSING SPONDYLITIS
     Route: 048
  6. DICLOFENAC [Concomitant]
     Active Substance: DICLOFENAC
     Indication: ANKYLOSING SPONDYLITIS
     Route: 048

REACTIONS (5)
  - Inguinal hernia [Recovered/Resolved]
  - Renal disorder [Recovered/Resolved]
  - Inguinal hernia [Recovered/Resolved]
  - Nephrolithiasis [Recovered/Resolved]
  - Nephrolithiasis [Recovered/Resolved]

NARRATIVE: CASE EVENT DATE: 2010
